FAERS Safety Report 7879063-7 (Version None)
Quarter: 2011Q4

REPORT INFORMATION
  Report Type: 
  Country: None (occurrence: None)
  Receive Date: 20111101
  Receipt Date: 20111026
  Transmission Date: 20120403
  Serious: Yes (Hospitalization)
  Sender: FDA-Public Use
  Company Number: PHHY2011SK94375

PATIENT
  Sex: Male

DRUGS (5)
  1. PIOGLITAZONE HYDROCHLORIDE/METFORMIN HYDROCHLORIDE [Concomitant]
     Indication: DIABETES MELLITUS
     Dosage: METFORMIN 15MG/ PIOGLITAZONE 865 MG, BID
     Route: 048
     Dates: start: 20100901
  2. GLIMEPIRIDE [Concomitant]
     Indication: DIABETES MELLITUS
     Dosage: 0.5 DF, BID
     Route: 048
     Dates: start: 20060819
  3. ZOMETA [Suspect]
     Indication: PROSTATE CANCER METASTATIC
     Dosage: 4 MG, QMO
     Route: 042
     Dates: start: 20071026
  4. ZOLADEX [Concomitant]
     Indication: PROSTATE CANCER
     Dosage: 10.8 MG, ONCE EVERY THREE MONTHS
     Route: 058
     Dates: start: 20071026
  5. ISOPTIN [Concomitant]
     Indication: MYOCARDIAL ISCHAEMIA
     Dosage: 120 MG, QD
     Dates: start: 20101001

REACTIONS (1)
  - OSTEONECROSIS OF JAW [None]
